FAERS Safety Report 20833801 (Version 6)
Quarter: 2025Q1

REPORT INFORMATION
  Report Type: Spontaneous
  Country: US (occurrence: US)
  Receive Date: 20220516
  Receipt Date: 20250117
  Transmission Date: 20250409
  Serious: Yes (Other)
  Sender: PFIZER
  Company Number: US-PFIZER INC-202200696901

PATIENT
  Age: 68 Year
  Sex: Female

DRUGS (1)
  1. XELJANZ XR [Suspect]
     Active Substance: TOFACITINIB CITRATE
     Dosage: 11 MG, 1X/DAY

REACTIONS (9)
  - Cerebrovascular accident [Unknown]
  - Ocular vascular disorder [Unknown]
  - Hip surgery [Unknown]
  - Post procedural complication [Unknown]
  - Lymphoedema [Unknown]
  - Intestinal barrier dysfunction [Unknown]
  - Bronchitis [Unknown]
  - Illness [Unknown]
  - Urinary tract infection [Recovering/Resolving]

NARRATIVE: CASE EVENT DATE: 20200101
